FAERS Safety Report 18154809 (Version 2)
Quarter: 2020Q4

REPORT INFORMATION
  Report Type: Spontaneous
  Country: CN (occurrence: CN)
  Receive Date: 20200817
  Receipt Date: 20201005
  Transmission Date: 20210113
  Serious: Yes (Other)
  Sender: FDA-Public Use
  Company Number: CN-LUPIN PHARMACEUTICALS INC.-2020-04576

PATIENT
  Age: 36 Year
  Sex: Female
  Weight: 53 kg

DRUGS (5)
  1. CEFOPERAZONE [Concomitant]
     Active Substance: CEFOPERAZONE
     Indication: COVID-19
     Dosage: UNK
     Route: 065
     Dates: start: 202002
  2. AZITHROMYCIN ANHYDROUS. [Suspect]
     Active Substance: AZITHROMYCIN ANHYDROUS
     Indication: COVID-19
     Dosage: UNK
     Route: 065
     Dates: start: 202002
  3. CEFACLOR. [Concomitant]
     Active Substance: CEFACLOR
     Indication: COVID-19
     Dosage: UNK
     Route: 065
  4. ARBIDOL [Concomitant]
     Active Substance: UMIFENOVIR
     Indication: COVID-19
     Dosage: UNK
     Route: 065
     Dates: start: 202002
  5. TAZOBACTAM [Concomitant]
     Active Substance: TAZOBACTAM
     Indication: COVID-19
     Dosage: UNK
     Route: 065

REACTIONS (3)
  - Drug effective for unapproved indication [Unknown]
  - Off label use [Unknown]
  - Maternal exposure during pregnancy [Unknown]

NARRATIVE: CASE EVENT DATE: 202002
